FAERS Safety Report 15464631 (Version 2)
Quarter: 2018Q4

REPORT INFORMATION
  Report Type: Spontaneous
  Country: US (occurrence: US)
  Receive Date: 20181004
  Receipt Date: 20181004
  Transmission Date: 20190204
  Serious: No
  Sender: FDA-Public Use
  Company Number: US-MELINTA-US-MDCO-17-00583

PATIENT

DRUGS (1)
  1. ORBACTIV [Suspect]
     Active Substance: ORITAVANCIN
     Indication: STAPHYLOCOCCAL SKIN INFECTION
     Dosage: NOT PROVIDED

REACTIONS (3)
  - Condition aggravated [Unknown]
  - Infection [Unknown]
  - Treatment failure [Unknown]
